FAERS Safety Report 6017161-3 (Version None)
Quarter: 2008Q4

REPORT INFORMATION
  Report Type: 
  Country: None (occurrence: None)
  Receive Date: 20081219
  Receipt Date: 20081204
  Transmission Date: 20090506
  Serious: Yes (Hospitalization)
  Sender: FDA-Public Use
  Company Number: KV200800928

PATIENT
  Age: 51 Year
  Sex: Male
  Weight: 70.3 kg

DRUGS (9)
  1. MORPHINE SULFATE [Suspect]
     Indication: BACK PAIN
     Dosage: 30 MG, BID, ORAL
     Route: 048
     Dates: start: 20080401
  2. MORPHINE SULFATE [Suspect]
     Indication: BACK PAIN
     Dosage: 15 MG, QID, ORAL
     Route: 048
     Dates: start: 20080401
  3. HYDROCODONE (HYDROCODONE) [Concomitant]
  4. XANAX [Concomitant]
  5. SOMA [Concomitant]
  6. OXCARBAZEPINE [Concomitant]
  7. RISPERDAL [Concomitant]
  8. LISINOPRIL [Concomitant]
  9. HYDROCHLOROTHIAZIDE [Concomitant]

REACTIONS (3)
  - ANXIETY [None]
  - DRUG TOLERANCE INCREASED [None]
  - PRODUCT QUALITY ISSUE [None]
